APPROVED DRUG PRODUCT: BOSUTINIB MONOHYDRATE
Active Ingredient: BOSUTINIB MONOHYDRATE
Strength: EQ 500MG BASE
Dosage Form/Route: TABLET;ORAL
Application: A209543 | Product #002 | TE Code: AB
Applicant: ALEMBIC PHARMACEUTICALS LTD
Approved: May 23, 2025 | RLD: No | RS: No | Type: RX